FAERS Safety Report 12078889 (Version 1)
Quarter: 2016Q1

REPORT INFORMATION
  Report Type: Spontaneous
  Country: FR (occurrence: FR)
  Receive Date: 20160216
  Receipt Date: 20160216
  Transmission Date: 20160526
  Serious: Yes (Hospitalization)
  Sender: FDA-Public Use
  Company Number: PHHY2016FR019607

PATIENT
  Age: 69 Year
  Sex: Female
  Weight: 74 kg

DRUGS (6)
  1. ZOPHREN [Suspect]
     Active Substance: ONDANSETRON
     Indication: PREMEDICATION
     Dosage: 8 MG/ 4 ML, QD
     Route: 042
     Dates: start: 20151210, end: 20151210
  2. CARBOPLATIN KABI [Suspect]
     Active Substance: CARBOPLATIN
     Dosage: 630 MG, QD
     Route: 042
     Dates: start: 20160128, end: 20160128
  3. TAXOL [Suspect]
     Active Substance: PACLITAXEL
     Dosage: 144 MG, QD
     Route: 042
     Dates: start: 20160128, end: 20160128
  4. ZOPHREN [Suspect]
     Active Substance: ONDANSETRON
     Dosage: 8 MG/ 4 ML, QD
     Route: 042
     Dates: start: 20160128, end: 20160128
  5. TAXOL [Suspect]
     Active Substance: PACLITAXEL
     Indication: OVARIAN EPITHELIAL CANCER
     Dosage: 144 MG, QD
     Route: 042
     Dates: start: 20151210, end: 20151210
  6. CARBOPLATIN KABI [Suspect]
     Active Substance: CARBOPLATIN
     Indication: OVARIAN EPITHELIAL CANCER
     Dosage: 630 MG, QD
     Route: 042
     Dates: start: 20151210, end: 20151210

REACTIONS (3)
  - Hypertension [Recovered/Resolved]
  - Rash [Recovered/Resolved]
  - Pruritus [Recovered/Resolved]

NARRATIVE: CASE EVENT DATE: 20160128
